FAERS Safety Report 9365397 (Version 1)
Quarter: 2013Q2

REPORT INFORMATION
  Report Type: Spontaneous
  Country: US (occurrence: None)
  Receive Date: 20130624
  Receipt Date: 20130624
  Transmission Date: 20140414
  Serious: Yes (Death, Other)
  Sender: FDA-Public Use
  Company Number: None

PATIENT
  Age: 87 Year
  Sex: Female

DRUGS (1)
  1. DABIGATRAN [Suspect]

REACTIONS (5)
  - Hypotension [None]
  - Tachycardia [None]
  - Shock [None]
  - Lower gastrointestinal haemorrhage [None]
  - International normalised ratio increased [None]
